FAERS Safety Report 12852700 (Version 1)
Quarter: 2016Q4

REPORT INFORMATION
  Report Type: Spontaneous
  Country: US (occurrence: US)
  Receive Date: 20161016
  Receipt Date: 20161016
  Transmission Date: 20170207
  Serious: Yes (Life-Threatening, Hospitalization, Other)
  Sender: FDA-Public Use
  Company Number: None

PATIENT
  Age: 57 Year
  Sex: Female
  Weight: 67.5 kg

DRUGS (7)
  1. OMEPRAZOLE. [Concomitant]
     Active Substance: OMEPRAZOLE
  2. LISINOPRIL. [Concomitant]
     Active Substance: LISINOPRIL
  3. AMLODIPINE BESYLATE. [Concomitant]
     Active Substance: AMLODIPINE BESYLATE
  4. DIAZEPAM. [Concomitant]
     Active Substance: DIAZEPAM
  5. ELMIRON [Suspect]
     Active Substance: PENTOSAN POLYSULFATE SODIUM
     Indication: PAIN
     Dosage: I CAPSULE 3 TIMES A DAY ORAL
     Route: 048
     Dates: start: 20161013, end: 20161014
  6. ELMIRON [Suspect]
     Active Substance: PENTOSAN POLYSULFATE SODIUM
     Indication: BLADDER DISCOMFORT
     Dosage: I CAPSULE 3 TIMES A DAY ORAL
     Route: 048
     Dates: start: 20161013, end: 20161014
  7. PYRIDIUM [Concomitant]
     Active Substance: PHENAZOPYRIDINE

REACTIONS (5)
  - Cold sweat [None]
  - Loss of consciousness [None]
  - Hyperhidrosis [None]
  - Palpitations [None]
  - Heart rate decreased [None]

NARRATIVE: CASE EVENT DATE: 20161014
